FAERS Safety Report 8879846 (Version 1)
Quarter: 2012Q4

REPORT INFORMATION
  Report Type: 
  Country: US (occurrence: US)
  Receive Date: 20121101
  Receipt Date: 20121101
  Transmission Date: 20130627
  Serious: No
  Sender: FDA-Public Use
  Company Number: US-JNJFOC-20121011399

PATIENT
  Sex: Female

DRUGS (4)
  1. DURAGESIC [Suspect]
     Indication: SYSTEMIC LUPUS ERYTHEMATOSUS
     Route: 062
     Dates: start: 2009
  2. DURAGESIC [Suspect]
     Indication: GASTRIC CANCER
     Route: 062
     Dates: start: 2009
  3. ALPRAZOLAM [Concomitant]
     Indication: SLEEP DISORDER
     Dosage: every other 3 days
     Route: 048
  4. GENERIC SOMA [Concomitant]
     Indication: MUSCLE RELAXANT THERAPY
     Dosage: every other 3 days
     Route: 065

REACTIONS (4)
  - Drug dose omission [Not Recovered/Not Resolved]
  - Wrong technique in drug usage process [Unknown]
  - Product quality issue [Unknown]
  - Product quality issue [Unknown]
